FAERS Safety Report 19295081 (Version 4)
Quarter: 2021Q4

REPORT INFORMATION
  Report Type: Report from Study
  Country: US (occurrence: US)
  Receive Date: 20210524
  Receipt Date: 20211222
  Transmission Date: 20220303
  Serious: No
  Sender: FDA-Public Use
  Company Number: NVSC2021US105004

PATIENT
  Age: 67 Year
  Sex: Female

DRUGS (4)
  1. ENTRESTO [Suspect]
     Active Substance: SACUBITRIL\VALSARTAN
     Indication: Cardiac failure
     Dosage: 100 MG, UNKNOWN (HCP INCREASED HER DOSE FROM 49/51 MG TO 97/103 MG)
     Route: 065
  2. ENTRESTO [Suspect]
     Active Substance: SACUBITRIL\VALSARTAN
     Dosage: 1 DF, BID (97/103)
     Route: 048
     Dates: start: 20210330
  3. PEPCID [Concomitant]
     Active Substance: FAMOTIDINE
     Indication: Product used for unknown indication
     Dosage: OTC MEDICATION
     Route: 065
  4. IMODIUM [Concomitant]
     Active Substance: LOPERAMIDE HYDROCHLORIDE
     Indication: Product used for unknown indication
     Dosage: OTC MEDICATION
     Route: 065

REACTIONS (13)
  - Malaise [Unknown]
  - Back disorder [Recovering/Resolving]
  - Pain [Recovering/Resolving]
  - Illness [Unknown]
  - Skin exfoliation [Unknown]
  - Alopecia [Unknown]
  - Disturbance in attention [Unknown]
  - Diarrhoea [Unknown]
  - Fungal infection [Unknown]
  - Nausea [Not Recovered/Not Resolved]
  - Asthenia [Unknown]
  - Memory impairment [Unknown]
  - Product dose omission issue [Unknown]

NARRATIVE: CASE EVENT DATE: 20210520
